FAERS Safety Report 10729043 (Version 9)
Quarter: 2020Q4

REPORT INFORMATION
  Report Type: Spontaneous
  Country: US (occurrence: US)
  Receive Date: 20150122
  Receipt Date: 20201230
  Transmission Date: 20210113
  Serious: No
  Sender: FDA-Public Use
  Company Number: US-PFIZER INC-2015021999

PATIENT
  Age: 59 Year
  Sex: Male

DRUGS (10)
  1. AZATHIOPRINE. [Concomitant]
     Active Substance: AZATHIOPRINE
     Dosage: 25 MG, DAILY
  2. URSOFALK [Concomitant]
     Active Substance: URSODIOL
     Dosage: 250 MG, DAILY
  3. SIMVASTATIN. [Concomitant]
     Active Substance: SIMVASTATIN
     Indication: BLOOD CHOLESTEROL INCREASED
     Dosage: UNK
  4. RAPAMUNE [Suspect]
     Active Substance: SIROLIMUS
     Indication: LIVER TRANSPLANT REJECTION
     Dosage: 1 MG, ALTERNATE DAY (1 MG EVERY DAY AND 2 MG ODD DAYS)
     Route: 048
  5. RAPAMUNE [Suspect]
     Active Substance: SIROLIMUS
     Indication: LIVER TRANSPLANT
     Dosage: 2 MG TABS 1 TAB ODD DAYS; 1 MG TABS 1 TAB EVEN DAYS
     Route: 048
  6. ENTECAVIR. [Concomitant]
     Active Substance: ENTECAVIR
     Dosage: 10 MG, DAILY
  7. EPSERA [Concomitant]
     Dosage: 10 MG, UNK
  8. RAPAMUNE [Suspect]
     Active Substance: SIROLIMUS
     Indication: IMMUNOSUPPRESSION
     Dosage: 2 MG, ALTERNATE DAY (1 MG ON ODD DAYS AND 2 MG ON EVEN DAYS)
     Route: 048
  9. HEPSERA [Concomitant]
     Active Substance: ADEFOVIR DIPIVOXIL
     Dosage: UNK
  10. ADEFOVIR [Concomitant]
     Active Substance: ADEFOVIR
     Dosage: UNK

REACTIONS (2)
  - Off label use [Unknown]
  - Immunosuppressant drug level decreased [Unknown]

NARRATIVE: CASE EVENT DATE: 2012
